FAERS Safety Report 9656787 (Version 4)
Quarter: 2014Q3

REPORT INFORMATION
  Report Type: Report from Study
  Country: US (occurrence: US)
  Receive Date: 20131030
  Receipt Date: 20140807
  Transmission Date: 20150326
  Serious: Yes (Hospitalization)
  Sender: FDA-Public Use
  Company Number: US-BRISTOL-MYERS SQUIBB COMPANY-19226778

PATIENT
  Age: 54 Year
  Sex: Male
  Weight: 100.8 kg

DRUGS (12)
  1. LORTAB [Concomitant]
     Active Substance: ACETAMINOPHEN\HYDROCODONE BITARTRATE
  2. METHYLPREDNISOLONE [Concomitant]
     Active Substance: METHYLPREDNISOLONE
  3. GABAPENTIN. [Concomitant]
     Active Substance: GABAPENTIN
  4. IPILIMUMAB [Suspect]
     Active Substance: IPILIMUMAB
     Indication: MALIGNANT MELANOMA
     Dosage: 16-16JUL13-1006MG?6-6AUG13-1007MG
     Route: 042
     Dates: start: 20130716
  5. HYDROMORPHONE [Concomitant]
     Active Substance: HYDROMORPHONE
  6. VEMURAFENIB [Suspect]
     Active Substance: VEMURAFENIB
     Indication: MALIGNANT MELANOMA
     Route: 048
     Dates: start: 20130528, end: 20130708
  7. MAGNESIUM SULFATE [Concomitant]
     Active Substance: MAGNESIUM SULFATE
  8. FENTANYL. [Concomitant]
     Active Substance: FENTANYL
  9. MARCAINE [Concomitant]
     Active Substance: BUPIVACAINE HYDROCHLORIDE
  10. TYLENOL [Concomitant]
     Active Substance: ACETAMINOPHEN
  11. LORAZEPAM. [Concomitant]
     Active Substance: LORAZEPAM
  12. MORPHINE [Concomitant]
     Active Substance: MORPHINE

REACTIONS (1)
  - Back pain [Recovered/Resolved with Sequelae]

NARRATIVE: CASE EVENT DATE: 20130817
